FAERS Safety Report 15831799 (Version 3)
Quarter: 2019Q1

REPORT INFORMATION
  Report Type: Other
  Country: IT (occurrence: IT)
  Receive Date: 20190116
  Receipt Date: 20190312
  Transmission Date: 20190417
  Serious: Yes (Other)
  Sender: FDA-Public Use
  Company Number: IT-ACCORD-102071

PATIENT
  Age: 33 Year
  Sex: Female

DRUGS (4)
  1. PLAQUENIL [Concomitant]
     Active Substance: HYDROXYCHLOROQUINE SULFATE
     Dosage: DOSAGE FORM: UNSPECIFIED
     Route: 065
  2. TOPIRAMATE. [Suspect]
     Active Substance: TOPIRAMATE
     Indication: EPILEPSY
     Dosage: 100 MG, DAILY.
     Route: 048
     Dates: start: 20170303, end: 20170403
  3. ACETYLSALICYLIC ACID [Concomitant]
     Active Substance: ASPIRIN
     Dosage: DOSAGE FORM: UNSPECIFIED
     Route: 065
  4. FOLIC ACID. [Concomitant]
     Active Substance: FOLIC ACID
     Dosage: DOSAGE FORM: UNSPECIFIED
     Route: 065

REACTIONS (3)
  - Petit mal epilepsy [Unknown]
  - Epilepsy [Recovering/Resolving]
  - Drug effect decreased [Recovering/Resolving]

NARRATIVE: CASE EVENT DATE: 20170402
